FAERS Safety Report 4710947-4 (Version None)
Quarter: 2005Q3

REPORT INFORMATION
  Report Type: 
  Country: None (occurrence: None)
  Receive Date: 20050708
  Receipt Date: 20050627
  Transmission Date: 20060218
  Serious: Yes (Hospitalization)
  Sender: FDA-Public Use
  Company Number: B0386230A

PATIENT
  Age: 61 Year
  Sex: Female

DRUGS (2)
  1. LITHIUM CARBONATE [Suspect]
     Indication: BIPOLAR DISORDER
  2. SURGERY (FORMULATION UNKNOWN) (SURGERY) [Suspect]

REACTIONS (3)
  - HYPERPARATHYROIDISM PRIMARY [None]
  - PARATHYROID GLAND ENLARGEMENT [None]
  - PARATHYROID TUMOUR BENIGN [None]
